FAERS Safety Report 4373186-5 (Version None)
Quarter: 2004Q2

REPORT INFORMATION
  Report Type: 
  Country: None (occurrence: None)
  Receive Date: 20040608
  Receipt Date: 20040224
  Transmission Date: 20050107
  Serious: Yes (Hospitalization)
  Sender: FDA-Public Use
  Company Number: FR-ROCHE-359639

PATIENT
  Age: 13 Year
  Sex: Female

DRUGS (5)
  1. VALIUM [Suspect]
     Route: 048
     Dates: start: 20031229, end: 20040114
  2. LEPTICUR [Suspect]
     Route: 048
     Dates: start: 20031229, end: 20040114
  3. LEPTICUR [Suspect]
     Route: 048
  4. SOLIAN [Suspect]
     Route: 048
     Dates: start: 20031229, end: 20040114
  5. SOLIAN [Suspect]
     Route: 048

REACTIONS (5)
  - COMA [None]
  - DRUG HYPERSENSITIVITY [None]
  - HYPOTONIA [None]
  - MYDRIASIS [None]
  - ORTHOSTATIC HYPOTENSION [None]
